FAERS Safety Report 16343271 (Version 3)
Quarter: 2019Q2

REPORT INFORMATION
  Report Type: Spontaneous
  Country: US (occurrence: US)
  Receive Date: 20190522
  Receipt Date: 20190619
  Transmission Date: 20190711
  Serious: Yes (Hospitalization)
  Sender: FDA-Public Use
  Company Number: US-ACTELION-A-NJ2019-190743

PATIENT
  Age: 70 Year
  Sex: Male
  Weight: 99.77 kg

DRUGS (4)
  1. VELETRI [Suspect]
     Active Substance: EPOPROSTENOL
     Indication: PULMONARY ARTERIAL HYPERTENSION
     Dosage: 14 NG/KG, PER MIN
     Route: 042
  2. VELETRI [Suspect]
     Active Substance: EPOPROSTENOL
     Dosage: UNK
     Route: 042
  3. WARFARIN [Concomitant]
     Active Substance: WARFARIN
  4. VELETRI [Suspect]
     Active Substance: EPOPROSTENOL
     Dosage: 15 NG/KG, PER MIN
     Route: 042

REACTIONS (9)
  - Headache [Unknown]
  - Catheter placement [Unknown]
  - Vomiting [Unknown]
  - Diarrhoea [Unknown]
  - Flushing [Unknown]
  - Nausea [Unknown]
  - Device leakage [Unknown]
  - Pain in jaw [Unknown]
  - Chest pain [Unknown]

NARRATIVE: CASE EVENT DATE: 20190521
